FAERS Safety Report 25255065 (Version 1)
Quarter: 2025Q2

REPORT INFORMATION
  Report Type: Spontaneous
  Country: JP (occurrence: JP)
  Receive Date: 20250430
  Receipt Date: 20250430
  Transmission Date: 20250716
  Serious: Yes (Hospitalization, Other)
  Sender: Norvium Bioscience
  Company Number: JP-Norvium Bioscience LLC-080083

PATIENT
  Age: 75 Year
  Sex: Female

DRUGS (6)
  1. CLARITHROMYCIN [Suspect]
     Active Substance: CLARITHROMYCIN
     Indication: Mycobacterium avium complex infection
     Dates: start: 2017, end: 2021
  2. ETHAMBUTOL [Concomitant]
     Active Substance: ETHAMBUTOL HYDROCHLORIDE
     Indication: Mycobacterium avium complex infection
     Dates: start: 2017
  3. RIFAMPIN [Concomitant]
     Active Substance: RIFAMPIN
     Indication: Mycobacterium avium complex infection
     Dates: start: 2017
  4. CLARITHROMYCIN [Suspect]
     Active Substance: CLARITHROMYCIN
     Indication: Bronchiectasis
     Dates: start: 2006
  5. ETHAMBUTOL [Concomitant]
     Active Substance: ETHAMBUTOL HYDROCHLORIDE
     Indication: Mycobacterium avium complex infection
     Dates: start: 2010, end: 2014
  6. RIFAMPIN [Concomitant]
     Active Substance: RIFAMPIN
     Indication: Mycobacterium avium complex infection
     Dates: start: 2010, end: 2014

REACTIONS (4)
  - Condition aggravated [Unknown]
  - Pulmonary cavitation [Unknown]
  - Lung opacity [Unknown]
  - Drug resistance [Unknown]

NARRATIVE: CASE EVENT DATE: 20210101
